FAERS Safety Report 12229573 (Version 1)
Quarter: 2016Q1

REPORT INFORMATION
  Report Type: Spontaneous
  Country: US (occurrence: None)
  Receive Date: 20160331
  Receipt Date: 20160331
  Transmission Date: 20160526
  Serious: No
  Sender: FDA-Public Use
  Company Number: None

PATIENT
  Age: 58 Year
  Sex: Male

DRUGS (2)
  1. RIBAVIRIN 200MG GENENTECH [Suspect]
     Active Substance: RIBAVIRIN
     Indication: PRODUCT USED FOR UNKNOWN INDICATION
     Dosage: 600MG EVERY MORNING AND EVERY PO
     Route: 048
     Dates: start: 20160204, end: 20160305
  2. VIEKIRA PAK [Suspect]
     Active Substance: DASABUVIR\OMBITASVIR\PARITAPREVIR\RITONAVIR
     Indication: PRODUCT USED FOR UNKNOWN INDICATION
     Dosage: 2 TAB AM AND 1 TAB BID PO
     Route: 048
     Dates: start: 20160204, end: 20160305

REACTIONS (5)
  - Pruritus [None]
  - Rhinorrhoea [None]
  - Headache [None]
  - Oropharyngeal pain [None]
  - Oral pain [None]

NARRATIVE: CASE EVENT DATE: 20160305
